FAERS Safety Report 8873315 (Version 2)
Quarter: 2013Q1

REPORT INFORMATION
  Report Type: Spontaneous
  Country: IE (occurrence: IE)
  Receive Date: 20121029
  Receipt Date: 20130124
  Transmission Date: 20140127
  Serious: Yes (Other)
  Sender: FDA-Public Use
  Company Number: IE-PFIZER INC-2012268710

PATIENT
  Age: 29 Year
  Sex: Female

DRUGS (4)
  1. CHAMPIX [Suspect]
     Indication: SMOKING CESSATION THERAPY
     Dosage: 0.5 MG, 1X/DAY
     Route: 048
     Dates: start: 20120926, end: 20120928
  2. CHAMPIX [Suspect]
     Dosage: 0.5 MG, 2X/DAY
     Route: 048
     Dates: start: 20120929, end: 20121001
  3. XANAX [Suspect]
     Indication: FEELING OF RELAXATION
     Dosage: UNK
  4. EVRA [Concomitant]
     Indication: CONTRACEPTION

REACTIONS (13)
  - Mental impairment [Recovering/Resolving]
  - Chest pain [Recovering/Resolving]
  - Palpitations [Recovering/Resolving]
  - Dissociation [Recovering/Resolving]
  - Derealisation [Recovering/Resolving]
  - Dizziness [Recovering/Resolving]
  - Respiratory rate increased [Recovering/Resolving]
  - Disturbance in attention [Recovering/Resolving]
  - Speech disorder [Recovering/Resolving]
  - Pain in extremity [Recovering/Resolving]
  - Feeling abnormal [Recovering/Resolving]
  - Drug ineffective [Unknown]
  - Anxiety [Recovering/Resolving]
